FAERS Safety Report 9990107 (Version 1)
Quarter: 2014Q1

REPORT INFORMATION
  Report Type: Report from Study
  Country: US (occurrence: US)
  Receive Date: 20140310
  Receipt Date: 20140310
  Transmission Date: 20141002
  Serious: No
  Sender: FDA-Public Use
  Company Number: US-ABBVIE-13P-163-1131282-00

PATIENT
  Age: 36 Year
  Sex: Female

DRUGS (40)
  1. DICYCLOMINE [Concomitant]
     Indication: PRODUCT USED FOR UNKNOWN INDICATION
  2. RANITIDINE [Concomitant]
     Indication: PRODUCT USED FOR UNKNOWN INDICATION
  3. TOSAREC [Concomitant]
     Indication: PRODUCT USED FOR UNKNOWN INDICATION
  4. TRAZODONE [Concomitant]
     Indication: PRODUCT USED FOR UNKNOWN INDICATION
  5. AMBIEN [Concomitant]
     Indication: PRODUCT USED FOR UNKNOWN INDICATION
  6. SINGULAIR [Concomitant]
     Indication: PRODUCT USED FOR UNKNOWN INDICATION
  7. CLINDAMYCIN [Concomitant]
     Indication: PRODUCT USED FOR UNKNOWN INDICATION
     Dosage: 1% BLOCK TWICE DAILY
  8. HYDROCORT [Concomitant]
     Indication: PRODUCT USED FOR UNKNOWN INDICATION
     Dosage: AS NEEDED
  9. CLOTRIMAZOLE [Concomitant]
     Indication: PRODUCT USED FOR UNKNOWN INDICATION
  10. CARAFATE [Concomitant]
     Indication: PRODUCT USED FOR UNKNOWN INDICATION
  11. HYDROXY [Concomitant]
     Indication: PRODUCT USED FOR UNKNOWN INDICATION
  12. ALLEGRA [Concomitant]
     Indication: PRODUCT USED FOR UNKNOWN INDICATION
  13. ACIDOPHILUS [Concomitant]
     Indication: PRODUCT USED FOR UNKNOWN INDICATION
  14. OMEPRAZOLE [Concomitant]
     Indication: PRODUCT USED FOR UNKNOWN INDICATION
  15. TRENTAINE [Concomitant]
     Indication: PRODUCT USED FOR UNKNOWN INDICATION
  16. FAMCICLOVIR [Concomitant]
     Indication: PRODUCT USED FOR UNKNOWN INDICATION
  17. LIALDA [Concomitant]
     Indication: PRODUCT USED FOR UNKNOWN INDICATION
  18. SENOKOT [Concomitant]
     Indication: PRODUCT USED FOR UNKNOWN INDICATION
  19. IMURAN [Concomitant]
     Indication: PRODUCT USED FOR UNKNOWN INDICATION
  20. NORTREL [Concomitant]
     Indication: CONTRACEPTION
  21. ROLAIDS [Concomitant]
     Indication: PRODUCT USED FOR UNKNOWN INDICATION
  22. HUMIRA [Suspect]
     Indication: CROHN^S DISEASE
     Dates: start: 20120920
  23. LOMOTIL [Concomitant]
     Indication: PRODUCT USED FOR UNKNOWN INDICATION
  24. ALEVE [Concomitant]
     Indication: PRODUCT USED FOR UNKNOWN INDICATION
  25. ANUSOL [Concomitant]
     Indication: PRODUCT USED FOR UNKNOWN INDICATION
     Dosage: 3-4 TIMES DAILY
  26. ALBUTEROL [Concomitant]
     Indication: PRODUCT USED FOR UNKNOWN INDICATION
     Dosage: 0.083 3-4 TIMES DAILY
  27. PROAIR [Concomitant]
     Indication: PRODUCT USED FOR UNKNOWN INDICATION
  28. SANCTURA [Concomitant]
     Indication: PRODUCT USED FOR UNKNOWN INDICATION
  29. IMITREX [Concomitant]
     Indication: PRODUCT USED FOR UNKNOWN INDICATION
  30. FLUCONAZOLE [Concomitant]
     Indication: PRODUCT USED FOR UNKNOWN INDICATION
  31. AQUAPHOR [Concomitant]
     Indication: PRODUCT USED FOR UNKNOWN INDICATION
  32. CITRACAL [Concomitant]
     Indication: PRODUCT USED FOR UNKNOWN INDICATION
  33. T-GEL [Concomitant]
     Indication: PSORIASIS
     Dosage: AS NEEDED
  34. PROMETHAZINE [Concomitant]
     Indication: PRODUCT USED FOR UNKNOWN INDICATION
     Dosage: 25 MG 1-2 ONCE DAILY AS NEEDED
  35. ONE A DAY [Concomitant]
     Indication: PRODUCT USED FOR UNKNOWN INDICATION
  36. VOLTAREN [Concomitant]
     Indication: PRODUCT USED FOR UNKNOWN INDICATION
  37. TYLENOL EXTRA STRENGTH [Concomitant]
     Indication: PRODUCT USED FOR UNKNOWN INDICATION
  38. GABAPENTIN [Concomitant]
     Indication: PRODUCT USED FOR UNKNOWN INDICATION
  39. TIZANIDINE [Concomitant]
     Indication: PRODUCT USED FOR UNKNOWN INDICATION
  40. CYMBALTA [Concomitant]
     Indication: PRODUCT USED FOR UNKNOWN INDICATION

REACTIONS (7)
  - Abnormal faeces [Not Recovered/Not Resolved]
  - Diarrhoea [Not Recovered/Not Resolved]
  - Injection site bruising [Not Recovered/Not Resolved]
  - Injection site swelling [Not Recovered/Not Resolved]
  - Pain [Not Recovered/Not Resolved]
  - Fatigue [Not Recovered/Not Resolved]
  - Depressed mood [Not Recovered/Not Resolved]
